FAERS Safety Report 5382060-7 (Version None)
Quarter: 2007Q2

REPORT INFORMATION
  Report Type: 
  Country: None (occurrence: None)
  Receive Date: 20070629
  Receipt Date: 20070227
  Transmission Date: 20071010
  Serious: Yes (Other)
  Sender: FDA-Public Use
  Company Number: PHEH2007US02571

PATIENT
  Sex: Female
  Weight: 69.8 kg

DRUGS (3)
  1. EXJADE [Suspect]
     Indication: IRON OVERLOAD
     Dosage: 500 MG, QD
     Dates: start: 20061101
  2. PROCRIT [Concomitant]
  3. VIDAZA [Concomitant]

REACTIONS (2)
  - HEADACHE [None]
  - PLATELET COUNT DECREASED [None]
